FAERS Safety Report 9628977 (Version 2)
Quarter: 2013Q4

REPORT INFORMATION
  Report Type: Report from Study
  Country: US (occurrence: US)
  Receive Date: 20131017
  Receipt Date: 20131017
  Transmission Date: 20140711
  Serious: Yes (Other)
  Sender: FDA-Public Use
  Company Number: US-ABBVIE-13P-163-1157355-00

PATIENT
  Age: 26 Year
  Sex: Female

DRUGS (8)
  1. DEPAKOTE ER [Suspect]
     Indication: PRODUCT USED FOR UNKNOWN INDICATION
     Route: 048
     Dates: end: 20130723
  2. ONFI [Suspect]
     Indication: CONVULSION
     Dosage: AT BEDTIME FOR 7 DAYS
     Route: 048
     Dates: start: 20130625
  3. ONFI [Suspect]
     Dosage: FOR 7 DAYS
     Route: 048
  4. ONFI [Suspect]
     Route: 048
     Dates: start: 20130709, end: 20130712
  5. ONFI [Suspect]
     Dosage: AT BEDTIME
     Route: 048
     Dates: start: 20130727
  6. ONFI [Suspect]
     Route: 048
  7. PHENOBARBITAL [Concomitant]
     Indication: PRODUCT USED FOR UNKNOWN INDICATION
     Dosage: AT BEDTIME
  8. TOPIRAMATE [Concomitant]
     Indication: PRODUCT USED FOR UNKNOWN INDICATION
     Route: 048

REACTIONS (7)
  - Convulsion [Unknown]
  - Weight bearing difficulty [Unknown]
  - Hypopnoea [Unknown]
  - Drooling [Unknown]
  - Blood alkaline phosphatase increased [Unknown]
  - Eating disorder [Unknown]
  - Somnolence [Unknown]
